FAERS Safety Report 11910622 (Version 1)
Quarter: 2016Q1

REPORT INFORMATION
  Report Type: Spontaneous
  Country: US (occurrence: None)
  Receive Date: 20160111
  Receipt Date: 20160111
  Transmission Date: 20160526
  Serious: No
  Sender: FDA-Public Use
  Company Number: None

PATIENT
  Age: 70 Year
  Sex: Female
  Weight: 65.77 kg

DRUGS (17)
  1. TECFIDERA [Suspect]
     Active Substance: DIMETHYL FUMARATE
     Indication: MULTIPLE SCLEROSIS
     Dosage: 1 IN THE MORNING, 1 IN THE EVENING
     Route: 048
     Dates: start: 20130901
  2. LEVOTHYROXINE. [Concomitant]
     Active Substance: LEVOTHYROXINE
  3. VIT.B1 [Concomitant]
  4. COD LIVER [Concomitant]
     Active Substance: COD LIVER OIL
  5. CALCIUM [Concomitant]
     Active Substance: CALCIUM
  6. VITAMIN C [Concomitant]
     Active Substance: ASCORBIC ACID
  7. VITAMIN E [Concomitant]
     Active Substance: .ALPHA.-TOCOPHEROL
  8. KIO DOPHILAS [Concomitant]
  9. BACLOFEN. [Concomitant]
     Active Substance: BACLOFEN
  10. MIRTAZAPINE. [Concomitant]
     Active Substance: MIRTAZAPINE
  11. VIT. D3 [Concomitant]
  12. COQ10 [Concomitant]
     Active Substance: UBIDECARENONE
  13. B7 [Concomitant]
  14. EVENING PRIMROSE [Concomitant]
  15. FEROUS SULFATE [Concomitant]
  16. B6 [Concomitant]
     Active Substance: PYRIDOXINE HYDROCHLORIDE
  17. VITAMIN B12 [Concomitant]
     Active Substance: CYANOCOBALAMIN

REACTIONS (2)
  - Granuloma annulare [None]
  - Adverse drug reaction [None]

NARRATIVE: CASE EVENT DATE: 20140301
